FAERS Safety Report 8456614-5 (Version None)
Quarter: 2012Q2

REPORT INFORMATION
  Report Type: 
  Country: None (occurrence: None)
  Receive Date: 20120621
  Receipt Date: 20120618
  Transmission Date: 20120825
  Serious: Yes (Other)
  Sender: FDA-Public Use
  Company Number: US-BAYER-2012-045851

PATIENT
  Age: 24 Year
  Sex: Female
  Weight: 149 kg

DRUGS (6)
  1. WELLBUTRIN [Concomitant]
     Dosage: 75 MG, QD
     Route: 048
  2. METFORMIN HCL [Concomitant]
     Dosage: 500 MG, TID
     Route: 048
  3. BEYAZ [Suspect]
     Indication: POLYCYSTIC OVARIES
  4. PROAIR HFA [Concomitant]
     Dosage: 2 PUFF(S), PRN
  5. BEYAZ [Suspect]
     Indication: CONTRACEPTION
     Dosage: UNK
     Route: 048
     Dates: start: 20120217, end: 20120404
  6. XENICAL [Concomitant]
     Dosage: 120 MG, QD
     Route: 048

REACTIONS (2)
  - DEEP VEIN THROMBOSIS [None]
  - PAIN IN EXTREMITY [None]
